FAERS Safety Report 20395408 (Version 4)
Quarter: 2022Q2

REPORT INFORMATION
  Report Type: Spontaneous
  Country: US (occurrence: US)
  Receive Date: 20220130
  Receipt Date: 20220531
  Transmission Date: 20220721
  Serious: Yes (Other)
  Sender: FDA-Public Use
  Company Number: US-BoehringerIngelheim-2022-BI-150947

PATIENT
  Sex: Male

DRUGS (1)
  1. SPIRIVA HANDIHALER [Suspect]
     Active Substance: TIOTROPIUM BROMIDE MONOHYDRATE
     Indication: Chronic obstructive pulmonary disease
     Dosage: 2 INHALATIONS
     Dates: start: 2016

REACTIONS (6)
  - COVID-19 [Not Recovered/Not Resolved]
  - Balance disorder [Not Recovered/Not Resolved]
  - Influenza [Not Recovered/Not Resolved]
  - Incorrect route of product administration [Unknown]
  - Product contamination physical [Unknown]
  - Dyspnoea [Not Recovered/Not Resolved]

NARRATIVE: CASE EVENT DATE: 20200101
